FAERS Safety Report 19761204 (Version 1)
Quarter: 2021Q3

REPORT INFORMATION
  Report Type: Spontaneous
  Country: US (occurrence: US)
  Receive Date: 20210825
  Receipt Date: 20210825
  Transmission Date: 20211014
  Serious: No
  Sender: FDA-Public Use
  Company Number: None

PATIENT
  Age: 31 Year
  Sex: Male

DRUGS (1)
  1. NALTREXONE (NALTREXONE HCL 50MG TAB) [Suspect]
     Active Substance: NALTREXONE HYDROCHLORIDE
     Indication: ALCOHOL USE DISORDER
     Route: 048

REACTIONS (3)
  - Lip swelling [None]
  - Rash [None]
  - Angioedema [None]

NARRATIVE: CASE EVENT DATE: 20210528
